FAERS Safety Report 23896230 (Version 1)
Quarter: 2024Q2

REPORT INFORMATION
  Report Type: Spontaneous
  Country: US (occurrence: None)
  Receive Date: 20240523
  Receipt Date: 20240523
  Transmission Date: 20240716
  Serious: Yes (Hospitalization)
  Sender: FDA-Public Use
  Company Number: None

PATIENT
  Sex: Female

DRUGS (2)
  1. TACROLIMUS [Suspect]
     Active Substance: TACROLIMUS
     Indication: Systemic lupus erythematosus
     Dosage: OTHER QUANTITY : TAKE 7 CAPSULES;?FREQUENCY : DAILY;?
     Route: 048
     Dates: start: 202402
  2. PROMACTA [Concomitant]
     Active Substance: ELTROMBOPAG OLAMINE

REACTIONS (4)
  - Chills [None]
  - Pyrexia [None]
  - Nausea [None]
  - Vomiting [None]
